FAERS Safety Report 4882232-1 (Version None)
Quarter: 2006Q1

REPORT INFORMATION
  Report Type: 
  Country: None (occurrence: None)
  Receive Date: 20060112
  Receipt Date: 20060101
  Transmission Date: 20060701
  Serious: Yes (Life-Threatening, Other)
  Sender: FDA-Public Use
  Company Number: 200610074BWH

PATIENT

DRUGS (3)
  1. SORAFENIB [Suspect]
     Indication: MALIGNANT MELANOMA
     Dosage: SEE IMAGE
     Route: 048
     Dates: start: 20050601, end: 20050621
  2. SORAFENIB [Suspect]
     Indication: MALIGNANT MELANOMA
     Dosage: SEE IMAGE
     Route: 048
     Dates: start: 20050629
  3. BEVACIZUMAB [Suspect]
     Route: 042
     Dates: start: 20050629

REACTIONS (2)
  - HYPERTENSION [None]
  - HYPONATRAEMIA [None]
